FAERS Safety Report 5068664-X (Version None)
Quarter: 2006Q3

REPORT INFORMATION
  Report Type: 
  Country: None (occurrence: None)
  Receive Date: 20060802
  Receipt Date: 20060201
  Transmission Date: 20061208
  Serious: No
  Sender: FDA-Public Use
  Company Number: US-BRISTOL-MYERS SQUIBB COMPANY-13266630

PATIENT
  Age: 73 Year
  Sex: Male
  Weight: 63 kg

DRUGS (9)
  1. COUMADIN [Suspect]
     Indication: PROPHYLAXIS
     Route: 048
     Dates: start: 20051230
  2. COUMADIN [Suspect]
     Indication: HEART RATE IRREGULAR
     Route: 048
     Dates: start: 20051230
  3. ZOCOR [Concomitant]
  4. ATENOLOL [Concomitant]
  5. PLAVIX [Concomitant]
  6. NIFEDIPINE [Concomitant]
  7. DIGITEK [Concomitant]
  8. LEVOXYL [Concomitant]
  9. ASPIRIN [Concomitant]

REACTIONS (5)
  - DIARRHOEA [None]
  - EPISTAXIS [None]
  - INTERNATIONAL NORMALISED RATIO FLUCTUATION [None]
  - JOINT SWELLING [None]
  - WEIGHT INCREASED [None]
